FAERS Safety Report 23584032 (Version 1)
Quarter: 2024Q1

REPORT INFORMATION
  Report Type: Other
  Country: US (occurrence: None)
  Receive Date: 20240301
  Receipt Date: 20240301
  Transmission Date: 20240410
  Serious: Yes (Death)
  Sender: FDA-Public Use
  Company Number: US-ROCHE-3518186

PATIENT
  Age: 44 Year
  Sex: Male

DRUGS (1)
  1. ACTEMRA [Suspect]
     Active Substance: TOCILIZUMAB
     Indication: COVID-19
     Dosage: DATE OF SERVICE: 06/FEB/2024?STRENGTH: 400 MG/20 ML
     Route: 042
     Dates: start: 20240209

REACTIONS (1)
  - Death [Fatal]

NARRATIVE: CASE EVENT DATE: 20240218
